FAERS Safety Report 7775734-1 (Version None)
Quarter: 2011Q3

REPORT INFORMATION
  Report Type: 
  Country: None (occurrence: None)
  Receive Date: 20110923
  Receipt Date: 20110916
  Transmission Date: 20111222
  Serious: Yes (Hospitalization)
  Sender: FDA-Public Use
  Company Number: NL-GLAXOSMITHKLINE-B0749936A

PATIENT
  Sex: Male

DRUGS (4)
  1. PAZOPANIB [Suspect]
     Indication: NEOPLASM MALIGNANT
     Route: 048
     Dates: start: 20110706
  2. SOTALOL HCL [Concomitant]
     Indication: ATRIAL FLUTTER
     Dosage: 80MG TWICE PER DAY
     Route: 048
     Dates: start: 20110501
  3. DOCETAXEL [Suspect]
     Indication: NEOPLASM MALIGNANT
     Route: 042
     Dates: start: 20110705
  4. NIFEDIPINE [Concomitant]
     Indication: HYPERTENSION
     Dosage: 60MG PER DAY
     Route: 048
     Dates: start: 20110725

REACTIONS (1)
  - PNEUMOTHORAX [None]
